FAERS Safety Report 18438813 (Version 1)
Quarter: 2020Q4

REPORT INFORMATION
  Report Type: Spontaneous
  Country: US (occurrence: US)
  Receive Date: 20201029
  Receipt Date: 20201029
  Transmission Date: 20210114
  Serious: No
  Sender: FDA-Public Use
  Company Number: US-GW PHARMA-202010USGW03666

PATIENT

DRUGS (4)
  1. EPIDIOLEX [Suspect]
     Active Substance: CANNABIDIOL
     Dosage: 500 MILLIGRAM, BID (THEY ARE NOW THINKING ABOUT GOING DOWN TO 4.5 ML BID)
     Route: 048
     Dates: start: 2020
  2. DEPAKOTE [Suspect]
     Active Substance: DIVALPROEX SODIUM
     Indication: PRODUCT USED FOR UNKNOWN INDICATION
     Dosage: UNK, LIKE TO STOP DEPAKOTE BECAUSE OF THE TREMORS AND POTENTIAL LIVER TOXICITY
     Route: 065
  3. EPIDIOLEX [Suspect]
     Active Substance: CANNABIDIOL
     Indication: PRODUCT USED FOR UNKNOWN INDICATION
     Dosage: 900 MILLIGRAM, BID (STARTED IN MARCH OR APRIL, TRIED TO GET THE DOSE TO 9 ML BID)
     Route: 048
     Dates: start: 2020, end: 2020
  4. EPIDIOLEX [Suspect]
     Active Substance: CANNABIDIOL
     Dosage: UNK, SLOWLY BROUGHT THE DOSE DOWN BY 0.5 ML EVERY COUPLE DAYS STARTING 1-2 MONTHS AGO
     Route: 048
     Dates: start: 2020, end: 2020

REACTIONS (4)
  - Therapeutic response unexpected [Unknown]
  - Weight decreased [Unknown]
  - Off label use [Unknown]
  - Diarrhoea [Recovering/Resolving]

NARRATIVE: CASE EVENT DATE: 2020
